FAERS Safety Report 18930935 (Version 3)
Quarter: 2021Q1

REPORT INFORMATION
  Report Type: Report from Study
  Country: None (occurrence: US)
  Receive Date: 20210224
  Receipt Date: 20210318
  Transmission Date: 20210420
  Serious: Yes (Hospitalization, Other)
  Sender: FDA-Public Use
  Company Number: US-ABBVIE-21K-163-3782249-00

PATIENT
  Age: 69 Year
  Sex: Female
  Weight: 101.7 kg

DRUGS (4)
  1. RINVOQ [Suspect]
     Active Substance: UPADACITINIB
     Route: 048
     Dates: start: 20210223
  2. PLAQUENIL [Concomitant]
     Active Substance: HYDROXYCHLOROQUINE SULFATE
     Indication: PRODUCT USED FOR UNKNOWN INDICATION
  3. RINVOQ [Suspect]
     Active Substance: UPADACITINIB
     Indication: RHEUMATOID ARTHRITIS
     Route: 048
     Dates: start: 202009, end: 20210121
  4. LEFLUNOMIDE. [Concomitant]
     Active Substance: LEFLUNOMIDE
     Indication: RHEUMATOID ARTHRITIS

REACTIONS (9)
  - Weight decreased [Not Recovered/Not Resolved]
  - COVID-19 pneumonia [Recovered/Resolved]
  - SARS-CoV-2 test positive [Unknown]
  - Pneumonia [Unknown]
  - Sinusitis [Recovered/Resolved]
  - Sinusitis [Unknown]
  - Malaise [Unknown]
  - Pneumonia [Recovered/Resolved]
  - Illness [Unknown]

NARRATIVE: CASE EVENT DATE: 202101
